FAERS Safety Report 6647952-7 (Version None)
Quarter: 2010Q1

REPORT INFORMATION
  Report Type: 
  Country: None (occurrence: None)
  Receive Date: 20100318
  Receipt Date: 20100309
  Transmission Date: 20100710
  Serious: Yes (Other)
  Sender: FDA-Public Use
  Company Number: 2010AL001510

PATIENT
  Age: 70 Year
  Sex: Female

DRUGS (3)
  1. FEVERALL [Suspect]
     Dosage: 1 GM; IV
     Route: 042
     Dates: start: 20100302, end: 20100302
  2. PAREGORIC LIQUID USP (ALPHARMA) (PAREGORIC LIQUID USP (ALPHARMA) ) [Suspect]
     Dosage: 10 MG;IV
     Route: 042
     Dates: start: 20100301, end: 20100302
  3. ANTIHISTAMINES [Concomitant]

REACTIONS (3)
  - DYSPHAGIA [None]
  - OBSTRUCTIVE AIRWAYS DISORDER [None]
  - SWOLLEN TONGUE [None]
